FAERS Safety Report 19971313 (Version 1)
Quarter: 2021Q4

REPORT INFORMATION
  Report Type: Report from Study
  Country: None (occurrence: US)
  Receive Date: 20211020
  Receipt Date: 20211020
  Transmission Date: 20220303
  Serious: Yes (Hospitalization)
  Sender: FDA-Public Use
  Company Number: US-CLINIGEN GROUP PLC/ CLINIGEN HEALTHCARE LTD-US-CLGN-21-00547

PATIENT
  Age: 59 Year
  Sex: Male
  Weight: 79.8 kg

DRUGS (19)
  1. PROLEUKIN [Suspect]
     Active Substance: ALDESLEUKIN
     Indication: Oropharyngeal squamous cell carcinoma
     Route: 042
     Dates: start: 20210928, end: 20210929
  2. LIFILEUCEL [Suspect]
     Active Substance: LIFILEUCEL
     Indication: Oropharyngeal squamous cell carcinoma
     Dosage: 1X10*9-150X10*9 ONCE
     Route: 042
     Dates: start: 20210927, end: 20210927
  3. CYCLOPHOSPHAMIDE [Suspect]
     Active Substance: CYCLOPHOSPHAMIDE
     Indication: Oropharyngeal squamous cell carcinoma
     Route: 042
     Dates: start: 20210920, end: 20210921
  4. FLUDARABINE [Suspect]
     Active Substance: FLUDARABINE PHOSPHATE
     Indication: Oropharyngeal squamous cell carcinoma
     Route: 042
     Dates: start: 20210922, end: 20210926
  5. PEMBROLIZUMAB [Suspect]
     Active Substance: PEMBROLIZUMAB
     Indication: Oropharyngeal squamous cell carcinoma
     Route: 042
     Dates: start: 20210909
  6. ONDANSETRON [Concomitant]
     Active Substance: ONDANSETRON
     Indication: Prophylaxis of nausea and vomiting
     Route: 048
     Dates: start: 20210930, end: 20211004
  7. FLUCONAZOLE [Concomitant]
     Active Substance: FLUCONAZOLE
     Indication: Infection prophylaxis
     Route: 048
     Dates: start: 20211001
  8. FLUCONAZOLE [Concomitant]
     Active Substance: FLUCONAZOLE
     Route: 042
     Dates: start: 20211004
  9. LEVOFLOXACIN [Concomitant]
     Active Substance: LEVOFLOXACIN
     Indication: Infection prophylaxis
     Route: 048
     Dates: start: 20211001
  10. PANTOPRAZOLE [Concomitant]
     Active Substance: PANTOPRAZOLE
     Indication: Gastrooesophageal reflux prophylaxis
     Route: 048
     Dates: start: 20211001
  11. ACYCLOVIR [Concomitant]
     Active Substance: ACYCLOVIR
     Indication: Infection prophylaxis
     Route: 048
     Dates: start: 20211003, end: 20211004
  12. ACYCLOVIR [Concomitant]
     Active Substance: ACYCLOVIR
     Route: 058
     Dates: start: 20211004
  13. DEXAMETHASONE [Concomitant]
     Active Substance: DEXAMETHASONE
     Indication: Prophylaxis
     Route: 042
     Dates: start: 20211003
  14. DEXTROSE [Concomitant]
     Active Substance: DEXTROSE
     Indication: Fluid replacement
     Route: 042
     Dates: start: 20211003, end: 20211004
  15. LACTATED RINGERS INFUSION [Concomitant]
     Indication: Fluid replacement
     Route: 042
     Dates: start: 20211003, end: 20211003
  16. LEVETIRACETAM [Concomitant]
     Active Substance: LEVETIRACETAM
     Indication: Infection prophylaxis
     Route: 058
     Dates: start: 20211003
  17. METRONIDAZOLE [Concomitant]
     Active Substance: METRONIDAZOLE
     Indication: Infection prophylaxis
     Route: 061
     Dates: start: 20211004
  18. MEPERIDINE [Concomitant]
     Active Substance: MEPERIDINE
     Indication: Product used for unknown indication
  19. INVESTIGATIONAL PRODUCT [Suspect]
     Active Substance: INVESTIGATIONAL PRODUCT

REACTIONS (1)
  - Catatonia [Recovered/Resolved]

NARRATIVE: CASE EVENT DATE: 20211003
